FAERS Safety Report 6611407-6 (Version None)
Quarter: 2010Q1

REPORT INFORMATION
  Report Type: 
  Country: None (occurrence: None)
  Receive Date: 20100303
  Receipt Date: 20100222
  Transmission Date: 20100710
  Serious: Yes (Hospitalization)
  Sender: FDA-Public Use
  Company Number: IT-ASTRAZENECA-2010SE07577

PATIENT
  Age: 42 Year
  Sex: Female

DRUGS (2)
  1. SEROQUEL [Suspect]
     Indication: INSOMNIA
     Route: 048
     Dates: end: 20080607
  2. SEROQUEL [Suspect]
     Dosage: 3000 MG (30 DOSAGE UNITS) OF SEROQUEL
     Route: 048
     Dates: start: 20080607, end: 20080607

REACTIONS (3)
  - GAIT DISTURBANCE [None]
  - HALLUCINATION [None]
  - INTENTIONAL OVERDOSE [None]
